FAERS Safety Report 16802316 (Version 2)
Quarter: 2020Q4

REPORT INFORMATION
  Report Type: Spontaneous
  Country: US (occurrence: US)
  Receive Date: 20190912
  Receipt Date: 20201203
  Transmission Date: 20210113
  Serious: No
  Sender: FDA-Public Use
  Company Number: US-SA-2019SA249250

PATIENT

DRUGS (2)
  1. KEVZARA [Suspect]
     Active Substance: SARILUMAB
     Dosage: 200 MG, QOW
     Route: 058
     Dates: start: 201810
  2. KEVZARA [Suspect]
     Active Substance: SARILUMAB
     Indication: POLYARTHRITIS
     Dosage: 200 MG, QOW
     Route: 058
     Dates: start: 20180927, end: 2018

REACTIONS (2)
  - Ulcer [Unknown]
  - Illness [Unknown]

NARRATIVE: CASE EVENT DATE: 202008
